FAERS Safety Report 12654466 (Version 1)
Quarter: 2016Q3

REPORT INFORMATION
  Report Type: Report from Study
  Country: DE (occurrence: DE)
  Receive Date: 20160816
  Receipt Date: 20160816
  Transmission Date: 20161109
  Serious: Yes (Hospitalization, Other)
  Sender: FDA-Public Use
  Company Number: PHHY2015DE159501

PATIENT
  Sex: Female
  Weight: 69.2 kg

DRUGS (1)
  1. PAZOPANIB [Suspect]
     Active Substance: PAZOPANIB
     Indication: RENAL CELL CARCINOMA
     Dosage: 600 MG, QD
     Route: 048
     Dates: start: 20150701, end: 201607

REACTIONS (10)
  - Thrombocytopenia [Recovered/Resolved]
  - Blood urea increased [Unknown]
  - Arrhythmia supraventricular [Unknown]
  - Thrombocytopenia [Not Recovered/Not Resolved]
  - Embolism arterial [Recovered/Resolved]
  - Atrial fibrillation [Unknown]
  - Haemoglobin decreased [Unknown]
  - Blood creatinine increased [Unknown]
  - Oedema [Not Recovered/Not Resolved]
  - Tachycardia [Unknown]

NARRATIVE: CASE EVENT DATE: 20150909
